FAERS Safety Report 21191987 (Version 1)
Quarter: 2022Q3

REPORT INFORMATION
  Report Type: Spontaneous
  Country: GB (occurrence: GB)
  Receive Date: 20220809
  Receipt Date: 20220809
  Transmission Date: 20221027
  Serious: Yes (Other)
  Sender: FDA-Public Use
  Company Number: GB-DIOMED-DM-0004239

PATIENT
  Age: 5 Month
  Sex: Female

DRUGS (6)
  1. HYDROCORTISONE [Suspect]
     Active Substance: HYDROCORTISONE
     Indication: Eczema infantile
     Route: 061
  2. COAL TAR\COCONUT OIL\SALICYLIC ACID [Suspect]
     Active Substance: COAL TAR\COCONUT OIL\SALICYLIC ACID
     Indication: Seborrhoeic dermatitis
     Route: 061
  3. MICONAZOLE NITRATE [Suspect]
     Active Substance: MICONAZOLE NITRATE
     Indication: Eczema infantile
     Route: 061
  4. DERMOL [Suspect]
     Active Substance: BENZALKONIUM CHLORIDE\CHLORHEXIDINE HYDROCHLORIDE\ISOPROPYL MYRISTATE\PARAFFIN
     Indication: Eczema infantile
     Dosage: 4 TIMES A DAY, DERMOL 500
     Route: 061
  5. EUMOVATE [Suspect]
     Active Substance: CLOBETASONE BUTYRATE
     Indication: Product used for unknown indication
     Route: 061
  6. ISOPROPYL MYRISTATE\MINERAL OIL [Suspect]
     Active Substance: ISOPROPYL MYRISTATE\MINERAL OIL
     Indication: Eczema infantile
     Dosage: EMOLLIENT
     Route: 061

REACTIONS (3)
  - Skin injury [Unknown]
  - Dermatitis [Unknown]
  - Skin erosion [Unknown]
